FAERS Safety Report 7522624 (Version 24)
Quarter: 2016Q2

REPORT INFORMATION
  Report Type: Report from Study
  Country: CA (occurrence: CA)
  Receive Date: 20100803
  Receipt Date: 20160427
  Transmission Date: 20160815
  Serious: Yes (Hospitalization, Other)
  Sender: FDA-Public Use
  Company Number: PHHY2009CA00854

PATIENT
  Age: 86 Year
  Sex: Female
  Weight: 38 kg

DRUGS (3)
  1. SANDOSTATIN LAR DEPOT [Suspect]
     Active Substance: OCTREOTIDE ACETATE
     Dosage: 20 MG, QMO (EVERY 4 WEEKS)
     Route: 030
  2. SANDOSTATIN LAR DEPOT [Suspect]
     Active Substance: OCTREOTIDE ACETATE
     Dosage: 10 MG, QMO (EVERY 4 WEEKS)
     Route: 030
  3. SANDOSTATIN LAR DEPOT [Suspect]
     Active Substance: OCTREOTIDE ACETATE
     Indication: CARCINOID TUMOUR OF THE SMALL BOWEL
     Dosage: 10 MG, QMO
     Route: 030
     Dates: start: 20080407

REACTIONS (31)
  - Hip fracture [Unknown]
  - Mucous stools [Recovered/Resolved]
  - Confusional state [Unknown]
  - Diarrhoea [Unknown]
  - Head injury [Unknown]
  - Vomiting [Unknown]
  - Rhinalgia [Not Recovered/Not Resolved]
  - Dizziness [Unknown]
  - Obstructive airways disorder [Unknown]
  - Asthenia [Recovered/Resolved]
  - Injection site pain [Recovered/Resolved]
  - Weight decreased [Recovered/Resolved]
  - Stress [Unknown]
  - Blood pressure diastolic decreased [Unknown]
  - Injection site swelling [Unknown]
  - Loss of consciousness [Unknown]
  - Memory impairment [Not Recovered/Not Resolved]
  - Blood pressure systolic increased [Unknown]
  - Muscle atrophy [Not Recovered/Not Resolved]
  - Blood pressure increased [Unknown]
  - Fall [Unknown]
  - Malignant neoplasm progression [Unknown]
  - Chest injury [Unknown]
  - Injection site erythema [Unknown]
  - Breast cancer [Recovering/Resolving]
  - Tenderness [Recovering/Resolving]
  - Face injury [Unknown]
  - Gait disturbance [Recovered/Resolved]
  - Feeling abnormal [Unknown]
  - Body temperature decreased [Unknown]
  - Eating disorder [Unknown]

NARRATIVE: CASE EVENT DATE: 201408
